FAERS Safety Report 4829337-9 (Version None)
Quarter: 2005Q4

REPORT INFORMATION
  Report Type: 
  Country: None (occurrence: None)
  Receive Date: 20051115
  Receipt Date: 20051115
  Transmission Date: 20060501
  Serious: Yes (Hospitalization, Other)
  Sender: FDA-Public Use
  Company Number: None

PATIENT
  Sex: Male

DRUGS (2)
  1. VANCOMYCIN [Suspect]
     Indication: KNEE ARTHROPLASTY
     Dosage: 1250 MG    EVERY 48 HOURS   IV
     Route: 042
     Dates: start: 20050913, end: 20051110
  2. VANCOMYCIN [Suspect]
     Indication: OSTEOMYELITIS
     Dosage: 1250 MG    EVERY 48 HOURS   IV
     Route: 042
     Dates: start: 20050913, end: 20051110

REACTIONS (6)
  - ADVERSE DRUG REACTION [None]
  - CHILLS [None]
  - DIFFICULTY IN WALKING [None]
  - INFUSION RELATED REACTION [None]
  - MALAISE [None]
  - PYREXIA [None]
